FAERS Safety Report 25033940 (Version 1)
Quarter: 2025Q1

REPORT INFORMATION
  Report Type: Spontaneous
  Country: US (occurrence: US)
  Receive Date: 20250303
  Receipt Date: 20250303
  Transmission Date: 20250408
  Serious: Yes (Other)
  Sender: Haleon PLC
  Company Number: US-SANDOZ-SDZ2025US010805

PATIENT
  Age: 43 Year
  Sex: Female

DRUGS (17)
  1. DICLOFENAC [Suspect]
     Active Substance: DICLOFENAC
     Indication: Psoriatic arthropathy
     Dosage: UNK UNK, QD (APPLY 2 TUBE BY TOPICAL ROUTE 4 TIMES EVERY DAY TO THE AFFECTED AREA(S)) (TOPICAL)OTHER
     Route: 061
  2. DICLOFENAC [Suspect]
     Active Substance: DICLOFENAC
     Route: 061
     Dates: start: 20241119
  3. HYDROCHLOROTHIAZIDE [Suspect]
     Active Substance: HYDROCHLOROTHIAZIDE
     Indication: Psoriatic arthropathy
     Dosage: QD (TAKE 1 TABLET BY ORAL ROUTE EVERY DAY)
     Route: 048
  4. PANTOPRAZOLE [Suspect]
     Active Substance: PANTOPRAZOLE
     Indication: Psoriatic arthropathy
     Dosage: QD (TAKE 1 TABLET BY ORAL ROUTE EVERY DAY)
     Route: 048
  5. SUMATRIPTAN [Suspect]
     Active Substance: SUMATRIPTAN
     Indication: Migraine
     Route: 048
  6. LEFLUNOMIDE [Suspect]
     Active Substance: LEFLUNOMIDE
     Indication: Product used for unknown indication
     Route: 048
     Dates: end: 20250109
  7. ILARIS [Suspect]
     Active Substance: CANAKINUMAB
     Indication: Prostatic specific antigen
     Route: 058
     Dates: start: 20241212
  8. ILARIS [Suspect]
     Active Substance: CANAKINUMAB
     Indication: Still^s disease
  9. HYDROXYCHLOROQUINE [Suspect]
     Active Substance: HYDROXYCHLOROQUINE
     Indication: Psoriatic arthropathy
     Dosage: 400 MG, QD (TAKE 1 TABLET BY ORAL ROUTE 2 TIMES EVERY DAY);?DURATION: 6 MONTHS 20 DAYS
     Route: 048
     Dates: start: 20240621, end: 20250109
  10. CELECOXIB [Suspect]
     Active Substance: CELECOXIB
     Indication: Product used for unknown indication
     Dosage: 200 MG, QD (TAKE 1 CAPSULE BY MOUTH TWICE A DAY)
     Route: 048
     Dates: start: 20241112
  11. PREDNISONE [Suspect]
     Active Substance: PREDNISONE
     Indication: Arthralgia
     Dosage: 5 MG, QD (TAKE 3 TABS BY MOUTH DAILY); UNKNOWN
     Route: 065
     Dates: start: 20220920
  12. PREDNISONE [Suspect]
     Active Substance: PREDNISONE
     Route: 048
     Dates: start: 20240912
  13. VILAZODONE [Suspect]
     Active Substance: VILAZODONE
     Indication: Product used for unknown indication
     Dosage: 40 MG, QD (TAKE 2 TABLET BY ORAL ROUTE EVERY DAY WITH FOOD)
     Route: 048
  14. NABUMETONE [Suspect]
     Active Substance: NABUMETONE
     Indication: Arthralgia
     Dosage: UNK (TAKE 1 TABLET BY ORAL ROUTE 2 TIMES EVERY DAY AS NEEDED);?FIRST ADMIN DATE: 04-AUG-2023?DURA...
     Route: 048
     Dates: end: 20250109
  15. COLCHICINE [Suspect]
     Active Substance: COLCHICINE
     Indication: Product used for unknown indication
     Dosage: UNK UNK, QD (TAKE 1 TABLET BY ORAL ROUTE EVERY DAY);
     Route: 048
     Dates: start: 20231102
  16. ZEPBOUND [Suspect]
     Active Substance: TIRZEPATIDE
     Indication: Product used for unknown indication
     Dosage: 2.5 MG, Q4W
     Route: 058
  17. ONDANSETRON [Suspect]
     Active Substance: ONDANSETRON
     Indication: Psoriatic arthropathy
     Route: 048

REACTIONS (5)
  - Psoriatic arthropathy [Unknown]
  - Weight decreased [Unknown]
  - Sleep apnoea syndrome [Not Recovered/Not Resolved]
  - Therapeutic product effect incomplete [Unknown]
  - Diarrhoea [Unknown]
